FAERS Safety Report 12226031 (Version 3)
Quarter: 2016Q2

REPORT INFORMATION
  Report Type: Spontaneous
  Country: US (occurrence: US)
  Receive Date: 20160331
  Receipt Date: 20160420
  Transmission Date: 20160815
  Serious: Yes (Hospitalization, Other)
  Sender: FDA-Public Use
  Company Number: US-KADMON PHARMACEUTICALS, LLC-KAD201603-001217

PATIENT
  Sex: Male

DRUGS (2)
  1. HARVONI [Concomitant]
     Active Substance: LEDIPASVIR\SOFOSBUVIR
  2. RIBASPHERE RIBAPAK [Suspect]
     Active Substance: RIBAVIRIN
     Indication: HEPATITIS C
     Dosage: TABLET; 600 MG (200 MG IN MORNING AND 400 MG IN EVENING)
     Route: 048
     Dates: start: 201510

REACTIONS (3)
  - Fluid overload [Not Recovered/Not Resolved]
  - Abdominal distension [Recovered/Resolved]
  - Peritonitis bacterial [Recovered/Resolved]
